FAERS Safety Report 25677787 (Version 2)
Quarter: 2025Q3

REPORT INFORMATION
  Report Type: Spontaneous
  Country: RU (occurrence: RU)
  Receive Date: 20250813
  Receipt Date: 20250819
  Transmission Date: 20251020
  Serious: Yes (Death, Other)
  Sender: BAYER HEALTHCARE PHARMACEUTICALS INC.
  Company Number: RU-BAYER-2025A107502

PATIENT
  Age: 66 Year
  Sex: Male

DRUGS (2)
  1. ULTRAVIST [Suspect]
     Active Substance: IOPROMIDE
     Indication: Computerised tomogram
     Dates: start: 20250721, end: 20250721
  2. ULTRAVIST [Suspect]
     Active Substance: IOPROMIDE
     Indication: Angiocardiogram

REACTIONS (4)
  - Death [Fatal]
  - Cardiac arrest [None]
  - Anaphylactic shock [None]
  - Malaise [None]

NARRATIVE: CASE EVENT DATE: 20250727
